FAERS Safety Report 16551415 (Version 5)
Quarter: 2019Q3

REPORT INFORMATION
  Report Type: Report from Study
  Country: None (occurrence: CA)
  Receive Date: 20190710
  Receipt Date: 20190919
  Transmission Date: 20191004
  Serious: No
  Sender: FDA-Public Use
  Company Number: CA-ABBVIE-19K-028-2846667-00

PATIENT
  Sex: Female
  Weight: 74.91 kg

DRUGS (4)
  1. LUPRON DEPOT [Suspect]
     Active Substance: LEUPROLIDE ACETATE
     Indication: ABDOMINAL PAIN
     Route: 030
     Dates: start: 20190130, end: 20190416
  2. LUPRON DEPOT [Suspect]
     Active Substance: LEUPROLIDE ACETATE
     Indication: PELVIC PAIN
  3. MIRENA [Concomitant]
     Active Substance: LEVONORGESTREL
     Indication: HAEMORRHAGE
  4. MIRENA [Concomitant]
     Active Substance: LEVONORGESTREL
     Indication: PELVIC PAIN
     Dates: start: 201702, end: 20190516

REACTIONS (1)
  - Off label use [Unknown]

NARRATIVE: CASE EVENT DATE: 2019
